FAERS Safety Report 10178087 (Version 2)
Quarter: 2014Q2

REPORT INFORMATION
  Report Type: Spontaneous
  Country: US (occurrence: US)
  Receive Date: 20140518
  Receipt Date: 20140518
  Transmission Date: 20141212
  Serious: Yes (Death)
  Sender: FDA-Public Use
  Company Number: US-ROCHE-1341642

PATIENT
  Age: 63 Year
  Sex: Male

DRUGS (8)
  1. XELODA [Suspect]
     Indication: PANCREATIC CARCINOMA
     Route: 048
     Dates: start: 20140102
  2. XELODA [Suspect]
     Route: 048
     Dates: start: 20140307
  3. TARCEVA [Suspect]
     Indication: PANCREATIC CARCINOMA
     Route: 048
     Dates: start: 20140327
  4. METFORMIN [Concomitant]
  5. ACYCLOVIR [Concomitant]
  6. BYSTOLIC [Concomitant]
  7. ACIPHEX [Concomitant]
  8. COUMADIN [Concomitant]

REACTIONS (3)
  - Death [Fatal]
  - Abdominal pain upper [Unknown]
  - Rash [Unknown]
